FAERS Safety Report 22991855 (Version 2)
Quarter: 2023Q4

REPORT INFORMATION
  Report Type: Spontaneous
  Country: NL (occurrence: NL)
  Receive Date: 20230927
  Receipt Date: 20231003
  Transmission Date: 20240109
  Serious: Yes (Other)
  Sender: FDA-Public Use
  Company Number: NL-AUROBINDO-AUR-APL-2023-042955

PATIENT
  Age: 65 Year
  Sex: Male

DRUGS (13)
  1. GABAPENTIN [Interacting]
     Active Substance: GABAPENTIN
     Indication: Product used for unknown indication
     Dosage: 300 MILLIGRAM
     Route: 065
     Dates: start: 20181230, end: 20190103
  2. MIRTAZAPINE [Suspect]
     Active Substance: MIRTAZAPINE
     Indication: Insomnia
     Dosage: 15 MILLIGRAM
     Route: 065
     Dates: start: 20180801, end: 20191028
  3. ZOPICLONE [Interacting]
     Active Substance: ZOPICLONE
     Indication: Sleep disorder
     Dosage: 7.5 MILLIGRAM (2017 AND 2023)
     Route: 065
  4. TRAMADOL HYDROCHLORIDE [Interacting]
     Active Substance: TRAMADOL HYDROCHLORIDE
     Indication: Pain
     Dosage: UNK
     Route: 065
     Dates: start: 20181027, end: 20211231
  5. AMITRIPTYLINE HYDROCHLORIDE [Suspect]
     Active Substance: AMITRIPTYLINE HYDROCHLORIDE
     Indication: Insomnia
     Dosage: 25 MILLIGRAM
     Route: 065
     Dates: start: 20180911, end: 20181029
  6. ZOPICLONE [Interacting]
     Active Substance: ZOPICLONE
     Indication: Sleep disorder
     Dosage: 7.5 MILLIGRAM (2017 AND 2023)
     Route: 065
     Dates: end: 2021
  7. ACETAMINOPHEN [Concomitant]
     Active Substance: ACETAMINOPHEN
     Indication: Restless legs syndrome
     Dosage: 1000 MILLIGRAM, BID(1000 MILLIGRAM,2 TIMES A DAY)
     Route: 065
  8. ACETAMINOPHEN [Concomitant]
     Active Substance: ACETAMINOPHEN
     Indication: Diffuse idiopathic skeletal hyperostosis
  9. HYDROCHLOROTHIAZIDE [Concomitant]
     Active Substance: HYDROCHLOROTHIAZIDE
     Indication: Hypertension
     Dosage: 12.5 MILLIGRAM, QD (12.5 MILLIGRAM, ONCE A DAY)
     Route: 065
  10. MELATONIN [Concomitant]
     Active Substance: MELATONIN
     Indication: Insomnia
     Dosage: 1200 UGR
     Route: 065
  11. PERINDOPRIL [Concomitant]
     Active Substance: PERINDOPRIL
     Indication: Hypertension
     Dosage: 8 MILLIGRAM, QD (8 MILLIGRAM, ONCE A DAY)
     Route: 065
  12. DEXTROAMPHETAMINE [Concomitant]
     Active Substance: DEXTROAMPHETAMINE
     Indication: Product used for unknown indication
     Dosage: 2.5 MILLIGRAM (2-3 TABLETS AS NEEDED)
     Route: 065
  13. CALCIUM [Concomitant]
     Active Substance: CALCIUM
     Indication: Diffuse idiopathic skeletal hyperostosis
     Dosage: 1000 MILLIGRAM, QD (1000 MILLIGRAM, ONCE A DAY)
     Route: 065

REACTIONS (10)
  - Dependence [Recovered/Resolved]
  - Sleep disorder [Recovered/Resolved]
  - Mood swings [Unknown]
  - Mood altered [Recovered/Resolved]
  - Therapeutic product effect decreased [Recovered/Resolved]
  - Drug interaction [Unknown]
  - Confusional state [Recovered/Resolved]
  - Somnolence [Unknown]
  - Depression [Recovered/Resolved]
  - Intentional underdose [Unknown]
